FAERS Safety Report 4512019-0 (Version None)
Quarter: 2004Q4

REPORT INFORMATION
  Report Type: 
  Country: None (occurrence: None)
  Receive Date: 20041129
  Receipt Date: 20040910
  Transmission Date: 20050328
  Serious: No
  Sender: FDA-Public Use
  Company Number: US-BRISTOL-MYERS SQUIBB COMPANY-12700423

PATIENT
  Age: 53 Year
  Sex: Male
  Weight: 77 kg

DRUGS (7)
  1. SUSTIVA [Suspect]
     Indication: HIV INFECTION
     Dosage: THERAPY ONGOING FOR 2 TO 3 YEARS
     Route: 048
  2. ZERIT [Concomitant]
  3. EPIVIR [Concomitant]
  4. LIPITOR [Concomitant]
  5. METFORMIN HCL [Concomitant]
  6. FLONASE [Concomitant]
  7. MULTIVITAMIN [Concomitant]

REACTIONS (1)
  - INSOMNIA [None]
